FAERS Safety Report 8256950-1 (Version None)
Quarter: 2012Q2

REPORT INFORMATION
  Report Type: 
  Country: None (occurrence: None)
  Receive Date: 20120403
  Receipt Date: 20120326
  Transmission Date: 20120825
  Serious: Yes (Other)
  Sender: FDA-Public Use
  Company Number: ES-JNJFOC-20120313780

PATIENT
  Age: 62 Year
  Sex: Male

DRUGS (8)
  1. REMICADE [Suspect]
     Indication: PSORIATIC ARTHROPATHY
     Route: 042
     Dates: start: 20010101, end: 20040101
  2. LEFLUNOMIDE [Concomitant]
     Indication: RENAL FAILURE
     Route: 065
     Dates: start: 20010101, end: 20070101
  3. ENALAPRIL [Concomitant]
     Indication: HYPERTENSION
     Route: 065
  4. ATORVASTATIN [Concomitant]
     Indication: DYSLIPIDAEMIA
     Route: 065
  5. PREDNISONE TAB [Concomitant]
     Route: 065
     Dates: start: 19830101, end: 20120101
  6. ETANERCEPT [Suspect]
     Indication: PSORIATIC ARTHROPATHY
     Route: 065
     Dates: start: 20010101, end: 20070101
  7. CYCLOSPORINE [Concomitant]
     Indication: RENAL FAILURE
     Route: 065
     Dates: start: 19930101, end: 20010101
  8. LEFLUNOMIDE [Concomitant]
     Indication: DIARRHOEA
     Route: 065
     Dates: start: 20010101, end: 20070101

REACTIONS (2)
  - ARTHRITIS BACTERIAL [None]
  - IRIDOCYCLITIS [None]
